FAERS Safety Report 5843101-3 (Version None)
Quarter: 2008Q3

REPORT INFORMATION
  Report Type: 
  Country: None (occurrence: None)
  Receive Date: 20080813
  Receipt Date: 20080805
  Transmission Date: 20090109
  Serious: Yes (Hospitalization)
  Sender: FDA-Public Use
  Company Number: GB-JNJFOC-20080502990

PATIENT
  Sex: Male

DRUGS (2)
  1. REMICADE [Suspect]
     Indication: CROHN'S DISEASE
     Dosage: 18 MAINTENANCE INFUSIONS
     Route: 042
  2. AZATHIOPRINE [Concomitant]

REACTIONS (2)
  - ABASIA [None]
  - LUPUS-LIKE SYNDROME [None]
